FAERS Safety Report 7113440-7 (Version None)
Quarter: 2010Q4

REPORT INFORMATION
  Report Type: 
  Country: None (occurrence: None)
  Receive Date: 20101119
  Receipt Date: 20101110
  Transmission Date: 20110411
  Serious: Yes (Hospitalization, Other)
  Sender: FDA-Public Use
  Company Number: ES-JNJFOC-20100907263

PATIENT
  Age: 79 Year
  Sex: Female

DRUGS (8)
  1. RISPERDAL [Suspect]
     Indication: ILL-DEFINED DISORDER
     Route: 048
  2. RISPERDAL [Suspect]
     Dosage: (X1/2)
     Route: 048
  3. PAROXETINE HCL [Concomitant]
     Indication: ILL-DEFINED DISORDER
     Route: 048
  4. OMEPRAZOLE [Concomitant]
     Indication: ILL-DEFINED DISORDER
     Route: 048
  5. ASPIRIN [Concomitant]
     Indication: ILL-DEFINED DISORDER
  6. AMARYL [Concomitant]
     Indication: ILL-DEFINED DISORDER
     Route: 048
  7. METFORMIN HCL [Concomitant]
     Indication: ILL-DEFINED DISORDER
     Route: 048
  8. SEDOTIME [Concomitant]
     Indication: ILL-DEFINED DISORDER
     Route: 048

REACTIONS (7)
  - AMNESIA [None]
  - ARTERITIS [None]
  - DYSSTASIA [None]
  - FALL [None]
  - GAIT DISTURBANCE [None]
  - HEADACHE [None]
  - PARKINSONISM [None]
